FAERS Safety Report 11993003 (Version 1)
Quarter: 2016Q1

REPORT INFORMATION
  Report Type: Spontaneous
  Country: IN (occurrence: IN)
  Receive Date: 20160203
  Receipt Date: 20160203
  Transmission Date: 20160526
  Serious: Yes (Other)
  Sender: FDA-Public Use
  Company Number: IN-STRIDES ARCOLAB LIMITED-2016SP000585

PATIENT

DRUGS (1)
  1. VANCOMYCIN [Suspect]
     Active Substance: VANCOMYCIN
     Indication: PRODUCT USED FOR UNKNOWN INDICATION
     Dosage: UNK
     Route: 065

REACTIONS (5)
  - Rash [Recovered/Resolved]
  - Alanine aminotransferase increased [Unknown]
  - Pyrexia [Recovered/Resolved]
  - Leukocytosis [Unknown]
  - Drug reaction with eosinophilia and systemic symptoms [Unknown]
